FAERS Safety Report 18555248 (Version 2)
Quarter: 2021Q1

REPORT INFORMATION
  Report Type: Report from Study
  Country: CA (occurrence: CA)
  Receive Date: 20201127
  Receipt Date: 20210309
  Transmission Date: 20210419
  Serious: Yes (Other)
  Sender: FDA-Public Use
  Company Number: CA-JNJFOC-20201137197

PATIENT
  Age: 6 Decade
  Sex: Female

DRUGS (2)
  1. STELARA [Suspect]
     Active Substance: USTEKINUMAB
  2. STELARA [Suspect]
     Active Substance: USTEKINUMAB
     Indication: CROHN^S DISEASE
     Route: 058
     Dates: start: 20181002

REACTIONS (6)
  - Fall [Unknown]
  - Pain [Unknown]
  - Tendon rupture [Unknown]
  - Loss of consciousness [Unknown]
  - Limb injury [Unknown]
  - COVID-19 [Unknown]

NARRATIVE: CASE EVENT DATE: 2018
